FAERS Safety Report 10070230 (Version 5)
Quarter: 2015Q2

REPORT INFORMATION
  Report Type: Spontaneous
  Country: JP (occurrence: JP)
  Receive Date: 20140410
  Receipt Date: 20150605
  Transmission Date: 20150821
  Serious: Yes (Life-Threatening, Other)
  Sender: FDA-Public Use
  Company Number: PHHY2014JP042100

PATIENT
  Age: 77 Year
  Sex: Female
  Weight: 47 kg

DRUGS (7)
  1. GLIVEC [Interacting]
     Active Substance: IMATINIB MESYLATE
     Indication: NEOPLASM RECURRENCE
     Dosage: 300 MG, QD
     Route: 048
     Dates: start: 20140501, end: 20150126
  2. GLIVEC [Suspect]
     Active Substance: IMATINIB MESYLATE
     Indication: GASTROINTESTINAL STROMAL TUMOUR
     Dosage: 400 MG, QD
     Route: 048
     Dates: start: 20080501, end: 20140402
  3. GLIVEC [Interacting]
     Active Substance: IMATINIB MESYLATE
     Dosage: UNK
     Route: 048
     Dates: start: 20150204, end: 20150304
  4. GLIVEC [Interacting]
     Active Substance: IMATINIB MESYLATE
     Dosage: 300 MG, QD
     Route: 048
     Dates: start: 20150406, end: 20150519
  5. VITAMIN B12 [Concomitant]
     Active Substance: CYANOCOBALAMIN
     Indication: PRODUCT USED FOR UNKNOWN INDICATION
     Route: 065
  6. METHYCOBAL [Concomitant]
     Active Substance: METHYLCOBALAMIN
     Indication: NEUROPATHY PERIPHERAL
     Dosage: 500 MG, TID
     Route: 048
     Dates: start: 20140115
  7. GLIVEC [Interacting]
     Active Substance: IMATINIB MESYLATE
     Dosage: 400 MG, QD
     Route: 048
     Dates: start: 20150520

REACTIONS (15)
  - Vitamin K deficiency [Recovered/Resolved]
  - Haemorrhagic diathesis [Recovered/Resolved]
  - Food interaction [Recovered/Resolved]
  - Drug level increased [Unknown]
  - Haemoglobin decreased [Recovered/Resolved]
  - Purpura [Recovered/Resolved]
  - Prothrombin time prolonged [Recovered/Resolved]
  - Haemorrhage subcutaneous [Unknown]
  - Melaena [Recovered/Resolved]
  - Subcutaneous haematoma [Unknown]
  - Prothrombin time prolonged [Recovered/Resolved]
  - Genital haemorrhage [Unknown]
  - Haemorrhagic diathesis [Recovered/Resolved]
  - Haemoptysis [Unknown]
  - Faeces discoloured [Unknown]

NARRATIVE: CASE EVENT DATE: 20140319
